FAERS Safety Report 12379524 (Version 1)
Quarter: 2016Q2

REPORT INFORMATION
  Report Type: Spontaneous
  Country: US (occurrence: US)
  Receive Date: 20160517
  Receipt Date: 20160517
  Transmission Date: 20160815
  Serious: No
  Sender: FDA-Public Use
  Company Number: US-TEIKOKU PHARMA USA-TPU2015-00579

PATIENT
  Age: 69 Year
  Sex: Male
  Weight: 57.02 kg

DRUGS (30)
  1. ASPIRIN. [Concomitant]
     Active Substance: ASPIRIN
     Route: 048
  2. TAB-A-VITE [Concomitant]
     Route: 048
  3. CALCIUM CARBONATE. [Concomitant]
     Active Substance: CALCIUM CARBONATE
     Route: 048
  4. FLONASE [Concomitant]
     Active Substance: FLUTICASONE PROPIONATE
  5. NEURONTIN [Concomitant]
     Active Substance: GABAPENTIN
     Route: 048
  6. GLYCOLAX, MIRALAX [Concomitant]
     Dosage: MIX AND DISSOLVE 17 GRAMS TWICE DAILY IN 8 OUNCES OF LIQUID AND DRINK
     Route: 048
  7. TRIAMCINOLONE [Concomitant]
     Active Substance: TRIAMCINOLONE
     Route: 061
  8. CVS VITAMIN D [Concomitant]
     Route: 048
  9. METOPROLOL. [Concomitant]
     Active Substance: METOPROLOL
     Route: 048
  10. NEXIUM [Concomitant]
     Active Substance: ESOMEPRAZOLE MAGNESIUM
     Route: 048
  11. APRESOLINE HYDROCHLORIDE [Concomitant]
     Active Substance: HYDRALAZINE HYDROCHLORIDE
  12. MYCOSTATIN [Concomitant]
     Active Substance: NYSTATIN
     Indication: RASH
     Route: 061
  13. PATANOL [Concomitant]
     Active Substance: OLOPATADINE HYDROCHLORIDE
     Route: 047
  14. K-DUR [Concomitant]
     Active Substance: POTASSIUM CHLORIDE
     Route: 048
  15. LIDODERM [Suspect]
     Active Substance: LIDOCAINE
     Indication: PRODUCT USED FOR UNKNOWN INDICATION
     Route: 061
  16. IMDUR [Concomitant]
     Active Substance: ISOSORBIDE MONONITRATE
     Route: 048
  17. LIPITOR [Concomitant]
     Active Substance: ATORVASTATIN CALCIUM
     Route: 048
  18. NITROSTAT [Concomitant]
     Active Substance: NITROGLYCERIN
     Indication: CHEST PAIN
  19. ZANTAC [Concomitant]
     Active Substance: RANITIDINE HYDROCHLORIDE
     Route: 048
  20. FLOMAX [Concomitant]
     Active Substance: TAMSULOSIN HYDROCHLORIDE
     Route: 048
  21. ALBUTEROL INHALER [Concomitant]
     Active Substance: ALBUTEROL
  22. CLEOCIN [Concomitant]
     Active Substance: CLINDAMYCIN PHOSPHATE
     Route: 048
  23. NIASPAN [Concomitant]
     Active Substance: NIACIN
     Route: 048
  24. K-DUR [Concomitant]
     Active Substance: POTASSIUM CHLORIDE
     Route: 048
  25. RANEXA [Concomitant]
     Active Substance: RANOLAZINE
     Route: 048
  26. PROSCAR [Concomitant]
     Active Substance: FINASTERIDE
     Route: 048
  27. FOLIC ACID. [Concomitant]
     Active Substance: FOLIC ACID
     Route: 048
  28. LASIX [Concomitant]
     Active Substance: FUROSEMIDE
     Route: 048
  29. ATROVENT HFA [Concomitant]
     Active Substance: IPRATROPIUM BROMIDE
  30. ACULAR [Concomitant]
     Active Substance: KETOROLAC TROMETHAMINE
     Route: 047

REACTIONS (3)
  - Cataract [Unknown]
  - Body height decreased [Not Recovered/Not Resolved]
  - Retinal disorder [Not Recovered/Not Resolved]

NARRATIVE: CASE EVENT DATE: 200512
